FAERS Safety Report 7049392-8 (Version None)
Quarter: 2010Q4

REPORT INFORMATION
  Report Type: 
  Country: None (occurrence: None)
  Receive Date: 20101018
  Receipt Date: 20101006
  Transmission Date: 20110411
  Serious: Yes (Death, Hospitalization)
  Sender: FDA-Public Use
  Company Number: JP-ROCHE-732353

PATIENT
  Sex: Female
  Weight: 40 kg

DRUGS (10)
  1. HERCEPTIN [Suspect]
     Indication: BREAST CANCER METASTATIC
     Route: 041
     Dates: start: 20040329, end: 20071101
  2. HERCEPTIN [Suspect]
     Route: 041
     Dates: start: 20090123, end: 20090220
  3. XELODA [Suspect]
     Indication: BREAST CANCER METASTATIC
     Dosage: REPORTED: XELODA 300
     Route: 048
     Dates: start: 20050520, end: 20060105
  4. XELODA [Suspect]
     Route: 048
     Dates: start: 20070601, end: 20070901
  5. CYCLOPHOSPHAMIDE [Concomitant]
     Dosage: DOSAGE IS UNCERTAIN
     Route: 065
     Dates: start: 20071211, end: 20090122
  6. EPIRUBICIN HYDROCHLORIDE [Concomitant]
     Dosage: DOSAGE IS UNCERTAIN
     Route: 065
     Dates: start: 20071211, end: 20090122
  7. FLUOROURACIL [Concomitant]
     Dosage: DOSAGE IS UNCERTAIN
     Route: 041
     Dates: start: 20071211, end: 20090122
  8. NAVELBINE [Concomitant]
     Dosage: DOSAGE IS UNCERTAIN
     Route: 042
     Dates: start: 20060106, end: 20070101
  9. HYSRON [Concomitant]
     Dosage: DOSAGE IS UNCERTAIN
     Route: 048
     Dates: start: 20070601, end: 20070901
  10. METHOTREXATE [Concomitant]
     Dosage: DOSAGE IS UNCERTAIN
     Route: 065
     Dates: start: 20071211, end: 20090122

REACTIONS (2)
  - CARDIAC FAILURE CONGESTIVE [None]
  - DISEASE PROGRESSION [None]
